FAERS Safety Report 6450734-2 (Version None)
Quarter: 2009Q4

REPORT INFORMATION
  Report Type: 
  Country: None (occurrence: None)
  Receive Date: 20091123
  Receipt Date: 20091119
  Transmission Date: 20100525
  Serious: Yes (Death, Hospitalization)
  Sender: FDA-Public Use
  Company Number: US-WYE-H12224809

PATIENT
  Age: 57 Year
  Sex: Female

DRUGS (1)
  1. TORISEL [Suspect]
     Indication: METASTATIC UTERINE CANCER
     Route: 042
     Dates: start: 20090428, end: 20090630

REACTIONS (4)
  - DEATH [None]
  - MALIGNANT PLEURAL EFFUSION [None]
  - PNEUMONITIS [None]
  - RENAL FAILURE [None]
